FAERS Safety Report 5167469-9 (Version None)
Quarter: 2006Q4

REPORT INFORMATION
  Report Type: 
  Country: None (occurrence: None)
  Receive Date: 20061130
  Receipt Date: 20061114
  Transmission Date: 20070319
  Serious: Yes (Life-Threatening, Hospitalization, Disabling)
  Sender: FDA-Public Use
  Company Number: 231176

PATIENT
  Age: 74 Year
  Sex: Male
  Weight: 103 kg

DRUGS (5)
  1. AVASTIN [Suspect]
     Indication: MALIGNANT MELANOMA
     Dosage: 10 MG, KG, UNK; INTRAVENOUS
     Route: 042
     Dates: start: 20060828, end: 20060925
  2. DECARBAZINE (DECARBAZINE) [Suspect]
     Indication: MALIGNANT MELANOMA
     Dosage: 800 MG, M2, UNK
     Dates: start: 20060428, end: 20060925
  3. CLONIDINE HCL [Concomitant]
  4. HYDROCHLOROTHIAZIDE/VALSARTAN [Concomitant]
  5. TICLOPIDINE HCL [Concomitant]

REACTIONS (6)
  - BLOOD PRESSURE INCREASED [None]
  - CARDIAC FAILURE [None]
  - LOCALISED OEDEMA [None]
  - OEDEMA PERIPHERAL [None]
  - PERICARDIAL EFFUSION [None]
  - PLEURAL EFFUSION [None]
